FAERS Safety Report 8578040-0 (Version None)
Quarter: 2012Q3

REPORT INFORMATION
  Report Type: 
  Country: None (occurrence: None)
  Receive Date: 20120808
  Receipt Date: 20120801
  Transmission Date: 20120928
  Serious: Yes (Other)
  Sender: FDA-Public Use
  Company Number: PHHY2012VE068002

PATIENT
  Sex: Female

DRUGS (2)
  1. DANTOINAL [Concomitant]
  2. TRILEPTAL [Suspect]
     Indication: EPILEPSY
     Dosage: UNK, TID
     Route: 048

REACTIONS (6)
  - CONVULSION [None]
  - SYNCOPE [None]
  - HEAD INJURY [None]
  - FALL [None]
  - THERMAL BURN [None]
  - DEPRESSION [None]
